FAERS Safety Report 6469190-3 (Version None)
Quarter: 2009Q4

REPORT INFORMATION
  Report Type: 
  Country: None (occurrence: None)
  Receive Date: 20091203
  Receipt Date: 20071010
  Transmission Date: 20100525
  Serious: Yes (Other)
  Sender: FDA-Public Use
  Company Number: US-ELI_LILLY_AND_COMPANY-US200709004680

PATIENT
  Sex: Male

DRUGS (5)
  1. BYETTA [Suspect]
     Dosage: 5 UG, 2/D
     Dates: start: 20060901, end: 20061001
  2. BYETTA [Suspect]
     Dosage: 10 UG, 2/D
     Dates: start: 20061001, end: 20070101
  3. BYETTA [Suspect]
     Dosage: 10 UG, EACH EVENING
     Dates: start: 20070101, end: 20070501
  4. GLYBURIDE AND METFORMIN HCL [Concomitant]
  5. LANTUS [Concomitant]
     Dosage: 14 U, UNK

REACTIONS (6)
  - HYPOGLYCAEMIA [None]
  - HYPOGLYCAEMIC SEIZURE [None]
  - HYPOGLYCAEMIC UNCONSCIOUSNESS [None]
  - NAUSEA [None]
  - PRESYNCOPE [None]
  - VOMITING [None]
